FAERS Safety Report 5400685-7 (Version None)
Quarter: 2007Q3

REPORT INFORMATION
  Report Type: 
  Country: None (occurrence: None)
  Receive Date: 20070730
  Receipt Date: 20070717
  Transmission Date: 20080115
  Serious: No
  Sender: FDA-Public Use
  Company Number: MY-ELI_LILLY_AND_COMPANY-MY200707003846

PATIENT
  Sex: Male

DRUGS (1)
  1. CIALIS [Suspect]
     Dosage: 20 MG, UNK
     Route: 048

REACTIONS (4)
  - CYANOPSIA [None]
  - DRUG INEFFECTIVE [None]
  - FLUSHING [None]
  - HEADACHE [None]
